FAERS Safety Report 12219786 (Version 1)
Quarter: 2016Q1

REPORT INFORMATION
  Report Type: Report from Study
  Country: US (occurrence: US)
  Receive Date: 20160330
  Receipt Date: 20160330
  Transmission Date: 20160526
  Serious: Yes (Other)
  Sender: FDA-Public Use
  Company Number: PHEH2015US005226

PATIENT
  Age: 70 Year
  Sex: Female
  Weight: 67.5 kg

DRUGS (4)
  1. AFINITOR [Suspect]
     Active Substance: EVEROLIMUS
     Indication: BREAST CANCER METASTATIC
     Dosage: 10 MG, QD
     Route: 048
     Dates: start: 201411, end: 20150209
  2. LISINOPRIL. [Concomitant]
     Active Substance: LISINOPRIL
     Indication: PRODUCT USED FOR UNKNOWN INDICATION
     Dosage: 5 MG, UNK FOR YEARS
     Route: 048
  3. EXEMESTANE. [Concomitant]
     Active Substance: EXEMESTANE
     Indication: BREAST CANCER
     Dosage: 25 MG, UNK
     Route: 048
     Dates: start: 201411, end: 201503
  4. HCTZ [Concomitant]
     Active Substance: HYDROCHLOROTHIAZIDE
     Indication: PRODUCT USED FOR UNKNOWN INDICATION
     Dosage: 25 MG, UNK, FOR YEARS
     Route: 048

REACTIONS (7)
  - Dyspnoea [Recovered/Resolved with Sequelae]
  - Metastases to lymph nodes [Unknown]
  - Peritoneal disorder [Unknown]
  - Lung infection [Unknown]
  - Ascites [Unknown]
  - Pleural effusion [Unknown]
  - Thyroid mass [Unknown]

NARRATIVE: CASE EVENT DATE: 20150209
